FAERS Safety Report 24684250 (Version 1)
Quarter: 2024Q4

REPORT INFORMATION
  Report Type: Report from Study
  Country: CN (occurrence: CN)
  Receive Date: 20241202
  Receipt Date: 20241202
  Transmission Date: 20250115
  Serious: Yes (Other)
  Sender: ROCHE
  Company Number: CN-ROCHE-10000144385

PATIENT

DRUGS (6)
  1. RITUXIMAB [Suspect]
     Active Substance: RITUXIMAB
     Indication: Diffuse large B-cell lymphoma
     Dosage: 375 MG/M2, INTRAVENOUSLY ON DAY 0
     Route: 042
  2. CYCLOPHOSPHAMIDE [Suspect]
     Active Substance: CYCLOPHOSPHAMIDE
     Indication: Diffuse large B-cell lymphoma
     Dosage: 750 MG/M2 INTRAVENOUSLY ON DAY 1
     Route: 042
  3. DOXORUBICIN [Suspect]
     Active Substance: DOXORUBICIN
     Indication: Diffuse large B-cell lymphoma
     Dosage: 50 MG/M2 INTRAVENOUSLY ON DAY 1
     Route: 042
  4. VINCRISTINE [Suspect]
     Active Substance: VINCRISTINE
     Indication: Diffuse large B-cell lymphoma
     Dosage: 1.4 MG/M2, MAXIMUM 2.0 MG, INTRAVENOUSLY ON DAY 1
     Route: 042
  5. PREDNISONE [Suspect]
     Active Substance: PREDNISONE
     Indication: Diffuse large B-cell lymphoma
     Dosage: 60 MG/M2 ORALLY ON DAYS 1 TO 5
     Route: 048
  6. TUCIDINOSTAT [Suspect]
     Active Substance: TUCIDINOSTAT
     Indication: Diffuse large B-cell lymphoma
     Dosage: 60 MG/M2 ORALLY ON DAYS 1 TO 5
     Route: 029

REACTIONS (24)
  - Neutrophil count decreased [Unknown]
  - Pyrexia [Unknown]
  - Anaemia [Unknown]
  - Platelet count decreased [Unknown]
  - Infection [Unknown]
  - Neutropenia [Unknown]
  - Opportunistic infection [Unknown]
  - Fungal infection [Unknown]
  - Herpes virus infection [Unknown]
  - Mycobacterial infection [Unknown]
  - Bacterial infection [Unknown]
  - Alanine aminotransferase increased [Unknown]
  - Aspartate aminotransferase increased [Unknown]
  - Thrombocytopenia [Unknown]
  - Rash [Unknown]
  - Fatigue [Unknown]
  - Diarrhoea [Unknown]
  - Abdominal pain [Unknown]
  - Neuropathy peripheral [Unknown]
  - Cardiovascular disorder [Unknown]
  - Febrile neutropenia [Unknown]
  - Blood creatinine increased [Unknown]
  - Respiratory tract infection [Unknown]
  - Granulocyte count decreased [Unknown]
